FAERS Safety Report 14286121 (Version 1)
Quarter: 2017Q4

REPORT INFORMATION
  Report Type: Report from Study
  Country: GB (occurrence: GB)
  Receive Date: 20171214
  Receipt Date: 20171214
  Transmission Date: 20180321
  Serious: Yes (Other)
  Sender: FDA-Public Use
  Company Number: GB-ACCORD-062017

PATIENT
  Sex: Female

DRUGS (1)
  1. LEVETIRACETAM. [Suspect]
     Active Substance: LEVETIRACETAM
     Indication: SEIZURE
     Dosage: BEING TAKEN OF

REACTIONS (5)
  - Mood swings [Unknown]
  - Drug effect incomplete [Unknown]
  - Depression [Unknown]
  - Aggression [Unknown]
  - Abnormal behaviour [Unknown]
